FAERS Safety Report 13589297 (Version 4)
Quarter: 2024Q4

REPORT INFORMATION
  Report Type: Spontaneous
  Country: GR (occurrence: GR)
  Receive Date: 20170529
  Receipt Date: 20241028
  Transmission Date: 20250114
  Serious: Yes (Life-Threatening, Hospitalization, Other)
  Sender: ACCORD
  Company Number: GR-ACCORD-052039

PATIENT
  Age: 65 Year
  Sex: Male

DRUGS (2)
  1. CAPECITABINE [Suspect]
     Active Substance: CAPECITABINE
     Indication: Adenocarcinoma of colon
     Dosage: ON DAYS 1-14 RECYCLED EVERY 3 WEEKS
     Route: 048
  2. OXALIPLATIN [Concomitant]
     Active Substance: OXALIPLATIN
     Indication: Adenocarcinoma of colon

REACTIONS (6)
  - Ventricular fibrillation [Recovered/Resolved]
  - Hypokalaemia [Unknown]
  - Atrial fibrillation [Recovered/Resolved]
  - Retrograde amnesia [Recovered/Resolved]
  - Cardiac arrest [Recovered/Resolved]
  - Acute myocardial infarction [Recovered/Resolved]
